FAERS Safety Report 6641290-4 (Version None)
Quarter: 2010Q1

REPORT INFORMATION
  Report Type: 
  Country: None (occurrence: None)
  Receive Date: 20100303
  Receipt Date: 20090428
  Transmission Date: 20100710
  Serious: No
  Sender: FDA-Public Use
  Company Number: 286875

PATIENT
  Age: 73 Year
  Sex: Male

DRUGS (6)
  1. NOVOLIN 70/30 [Suspect]
     Indication: INSULIN-REQUIRING TYPE 2 DIABETES MELLITUS
     Dosage: 86 LU, QD, SUBCUTANEOUS
     Route: 058
  2. NOVOLIN 70/30 [Suspect]
  3. METFORMIN HCL [Concomitant]
  4. VITAMIN B12 [Concomitant]
  5. SIMVASTATIN [Concomitant]
  6. ETODOLAC [Concomitant]

REACTIONS (1)
  - WEIGHT INCREASED [None]
